FAERS Safety Report 15128498 (Version 1)
Quarter: 2018Q3

REPORT INFORMATION
  Report Type: Spontaneous
  Country: US (occurrence: US)
  Receive Date: 20180711
  Receipt Date: 20180711
  Transmission Date: 20181010
  Serious: No
  Sender: FDA-Public Use
  Company Number: US-GLENMARK PHARMACEUTICALS-2017GMK029865

PATIENT

DRUGS (1)
  1. MUPIROCIN. [Suspect]
     Active Substance: MUPIROCIN
     Indication: SKIN INFECTION
     Dosage: UNK
     Route: 061

REACTIONS (8)
  - Drug hypersensitivity [Unknown]
  - Erythema [Unknown]
  - Drug ineffective [Unknown]
  - Skin infection [Unknown]
  - Diarrhoea [Unknown]
  - Skin burning sensation [Unknown]
  - Condition aggravated [Unknown]
  - Pain [Unknown]
